FAERS Safety Report 9253738 (Version 1)
Quarter: 2013Q2

REPORT INFORMATION
  Report Type: Spontaneous
  Country: GB (occurrence: GB)
  Receive Date: 20130425
  Receipt Date: 20130425
  Transmission Date: 20140414
  Serious: Yes (Other)
  Sender: FDA-Public Use
  Company Number: GB-AMGEN-GBRSP2013027915

PATIENT
  Age: 70 Year
  Sex: Female

DRUGS (4)
  1. NPLATE [Suspect]
     Indication: IDIOPATHIC THROMBOCYTOPENIC PURPURA
     Dosage: 1 MUG/KG, UNK
  2. CORTICOSTEROIDS [Concomitant]
     Indication: PLATELET COUNT DECREASED
  3. IMMUNOGLOBULINS [Concomitant]
     Indication: PLATELET COUNT DECREASED
     Route: 042
  4. PREDNISOLONE [Concomitant]
     Indication: PLATELET COUNT DECREASED

REACTIONS (3)
  - Therapeutic response decreased [Unknown]
  - Pulmonary embolism [Unknown]
  - Platelet count decreased [Unknown]
